FAERS Safety Report 11203850 (Version 1)
Quarter: 2015Q2

REPORT INFORMATION
  Report Type: Spontaneous
  Country: FR (occurrence: FR)
  Receive Date: 20150619
  Receipt Date: 20150619
  Transmission Date: 20150821
  Serious: Yes (Other)
  Sender: FDA-Public Use
  Company Number: FR-009507513-1506FRA010165

PATIENT
  Age: 42 Year
  Sex: Male
  Weight: 102 kg

DRUGS (2)
  1. JANUMET [Suspect]
     Active Substance: METFORMIN HYDROCHLORIDE\SITAGLIPTIN PHOSPHATE
     Dosage: 1 TABLET BID
     Route: 048
     Dates: start: 20150408, end: 20150413
  2. UVEDOSE [Concomitant]
     Active Substance: CHOLECALCIFEROL
     Dosage: FREQUENCY 1 DF MTH

REACTIONS (3)
  - Headache [Recovered/Resolved]
  - Visual impairment [Recovered/Resolved]
  - Muscular weakness [Recovered/Resolved]

NARRATIVE: CASE EVENT DATE: 20150410
